FAERS Safety Report 21101339 (Version 3)
Quarter: 2022Q3

REPORT INFORMATION
  Report Type: Report from Study
  Country: DE (occurrence: DE)
  Receive Date: 20220719
  Receipt Date: 20220831
  Transmission Date: 20221027
  Serious: Yes (Hospitalization)
  Sender: FDA-Public Use
  Company Number: DE-MYLANLABS-2020M1014197

PATIENT
  Sex: Male

DRUGS (2)
  1. HULIO [Suspect]
     Active Substance: ADALIMUMAB-FKJP
     Indication: Axial spondyloarthritis
     Dosage: 40 MILLIGRAM, Q2W
     Route: 065
     Dates: start: 20190925, end: 20191107
  2. HULIO [Suspect]
     Active Substance: ADALIMUMAB-FKJP
     Indication: Psoriatic arthropathy
     Dosage: UNK, Q2W
     Route: 065
     Dates: start: 20191211

REACTIONS (1)
  - Therapeutic procedure [Recovered/Resolved]

NARRATIVE: CASE EVENT DATE: 20191126
